FAERS Safety Report 4589708-5 (Version None)
Quarter: 2005Q1

REPORT INFORMATION
  Report Type: 
  Country: None (occurrence: None)
  Receive Date: 20050223
  Receipt Date: 20050211
  Transmission Date: 20050727
  Serious: Yes (Hospitalization, Other)
  Sender: FDA-Public Use
  Company Number: ES-BRISTOL-MYERS SQUIBB COMPANY-12860748

PATIENT
  Age: 71 Year
  Sex: Male
  Weight: 94 kg

DRUGS (3)
  1. VIDEX [Suspect]
     Indication: HIV INFECTION
     Route: 048
     Dates: start: 20020606, end: 20020810
  2. PANTOPRAZOLE [Concomitant]
     Route: 048
     Dates: start: 19980101
  3. VITAMIN B-12 [Concomitant]
     Route: 051
     Dates: start: 19980101

REACTIONS (1)
  - PANCREATITIS [None]
